FAERS Safety Report 12575786 (Version 1)
Quarter: 2016Q3

REPORT INFORMATION
  Report Type: Spontaneous
  Country: CN (occurrence: CN)
  Receive Date: 20160720
  Receipt Date: 20160720
  Transmission Date: 20161109
  Serious: Yes (Other)
  Sender: FDA-Public Use
  Company Number: ALCN2016CN004872

PATIENT
  Age: 73 Year
  Sex: Female

DRUGS (1)
  1. FLUORESCITE [Suspect]
     Active Substance: FLUORESCEIN SODIUM
     Indication: ANGIOGRAM
     Route: 065

REACTIONS (4)
  - Chest discomfort [Unknown]
  - Yellow skin [Unknown]
  - Liver function test abnormal [Recovering/Resolving]
  - Nausea [Unknown]
